FAERS Safety Report 24881467 (Version 1)
Quarter: 2025Q1

REPORT INFORMATION
  Report Type: Spontaneous
  Country: US (occurrence: US)
  Receive Date: 20250124
  Receipt Date: 20250124
  Transmission Date: 20250408
  Serious: No
  Sender: AMGEN
  Company Number: US-AMGEN-USASP2025010786

PATIENT
  Sex: Female

DRUGS (2)
  1. EVENITY [Suspect]
     Active Substance: ROMOSOZUMAB-AQQG
     Indication: Osteoporosis
     Dosage: UNK, QMO(105 MG 2 SYRINGES)
     Route: 058
     Dates: start: 2022
  2. EVENITY [Suspect]
     Active Substance: ROMOSOZUMAB-AQQG
     Dosage: UNK, QMO(105 MG 2 SYRINGES)
     Route: 058
     Dates: start: 20240229

REACTIONS (6)
  - Dry eye [Recovering/Resolving]
  - Corneal erosion [Recovering/Resolving]
  - Depression [Unknown]
  - Anxiety [Unknown]
  - Hypertension [Unknown]
  - Therapy interrupted [Unknown]

NARRATIVE: CASE EVENT DATE: 20240101
